FAERS Safety Report 7817018-9 (Version None)
Quarter: 2011Q4

REPORT INFORMATION
  Report Type: 
  Country: None (occurrence: None)
  Receive Date: 20111013
  Receipt Date: 20111010
  Transmission Date: 20120403
  Serious: Yes (Hospitalization, Other)
  Sender: FDA-Public Use
  Company Number: 2011-01295

PATIENT
  Age: 62 Year
  Sex: Male

DRUGS (1)
  1. ZICAM INTENSE SINUS RELIEF [Suspect]
     Indication: MULTIPLE ALLERGIES
     Dosage: EVERY DAY FOR 1 YEAR

REACTIONS (9)
  - FALL [None]
  - BRAIN MASS [None]
  - BLOOD PRESSURE DECREASED [None]
  - HEADACHE [None]
  - HYPOAESTHESIA [None]
  - LIP INJURY [None]
  - HEAD INJURY [None]
  - BLOOD PRESSURE INADEQUATELY CONTROLLED [None]
  - BLINDNESS [None]
